FAERS Safety Report 17065281 (Version 1)
Quarter: 2019Q4

REPORT INFORMATION
  Report Type: Spontaneous
  Country: FR (occurrence: FR)
  Receive Date: 20191122
  Receipt Date: 20191122
  Transmission Date: 20200122
  Serious: Yes (Hospitalization)
  Sender: FDA-Public Use
  Company Number: FR-MYLANLABS-2019M1057405

PATIENT
  Age: 68 Year
  Sex: Female

DRUGS (4)
  1. TERBUTALINE [Suspect]
     Active Substance: TERBUTALINE
     Dosage: 2 SERIES OF THREE AEROSOL
     Route: 055
  2. IPRATROPIUM [Suspect]
     Active Substance: IPRATROPIUM
     Indication: ASTHMA
     Dosage: ONE AEROSOL
     Route: 055
  3. IPRATROPIUM [Suspect]
     Active Substance: IPRATROPIUM
     Dosage: 2 SERIES OF THREE AEROSOL
     Route: 055
  4. TERBUTALINE [Suspect]
     Active Substance: TERBUTALINE
     Indication: ASTHMA
     Dosage: ONE AEROSOL
     Route: 055

REACTIONS (3)
  - Blood lactic acid increased [Recovered/Resolved]
  - Hyperlactacidaemia [Recovered/Resolved]
  - Metabolic acidosis [Recovered/Resolved]
